FAERS Safety Report 6665131-4 (Version None)
Quarter: 2010Q2

REPORT INFORMATION
  Report Type: 
  Country: None (occurrence: None)
  Receive Date: 20100402
  Receipt Date: 20100323
  Transmission Date: 20101027
  Serious: Yes (Disabling)
  Sender: FDA-Public Use
  Company Number: US-JNJFOC-20100307262

PATIENT
  Age: 68 Year
  Sex: Female

DRUGS (2)
  1. LEVAQUIN [Suspect]
     Indication: DRUG USE FOR UNKNOWN INDICATION
     Route: 065
  2. INHALERS [Concomitant]
     Indication: LUNG DISORDER
     Route: 055

REACTIONS (5)
  - BEDRIDDEN [None]
  - MOBILITY DECREASED [None]
  - OEDEMA PERIPHERAL [None]
  - SWELLING FACE [None]
  - TENDON PAIN [None]
